FAERS Safety Report 6593110-4 (Version None)
Quarter: 2010Q1

REPORT INFORMATION
  Report Type: 
  Country: None (occurrence: None)
  Receive Date: 20100212
  Receipt Date: 20100129
  Transmission Date: 20100710
  Serious: Yes (Life-Threatening, Hospitalization)
  Sender: FDA-Public Use
  Company Number: TCI2008A05852

PATIENT
  Age: 75 Year
  Sex: Female

DRUGS (8)
  1. TAKEPRON QD       (LANSOPRAZOLE) [Suspect]
     Dosage: 30 MG (30 MG, 1 IN 1 D), PER ORAL
     Route: 048
     Dates: start: 20060101, end: 20080331
  2. LOXONIN (LOXOPROFEN SODIUM) [Suspect]
     Indication: BACK PAIN
     Dosage: 180 MG (180 MG, 1 D), PER ORAL
     Route: 048
     Dates: start: 20060101, end: 20080331
  3. LOXONIN (LOXOPROFEN SODIUM) [Suspect]
     Indication: OSTEOARTHRITIS
     Dosage: 180 MG (180 MG, 1 D), PER ORAL
     Route: 048
     Dates: start: 20060101, end: 20080331
  4. CRESTOR [Concomitant]
  5. CARVEDILOL [Concomitant]
  6. TORSEMIDE [Concomitant]
  7. COLONEL (POLYCARBOPHIL CALCIUM) [Concomitant]
  8. ADSORBIN (ALUMINIUM SILICATE) [Concomitant]

REACTIONS (11)
  - ABDOMINAL PAIN [None]
  - ANAEMIA [None]
  - COLITIS COLLAGENOUS [None]
  - DIARRHOEA [None]
  - GENERAL PHYSICAL HEALTH DETERIORATION [None]
  - GENERALISED OEDEMA [None]
  - HAEMORRHAGIC DIATHESIS [None]
  - HYPOPROTEINAEMIA [None]
  - HYPOVOLAEMIC SHOCK [None]
  - LYMPHADENOPATHY [None]
  - PROTEIN-LOSING GASTROENTEROPATHY [None]
